FAERS Safety Report 7641012-4 (Version None)
Quarter: 2011Q3

REPORT INFORMATION
  Report Type: 
  Country: None (occurrence: None)
  Receive Date: 20110728
  Receipt Date: 20110726
  Transmission Date: 20111222
  Serious: Yes (Hospitalization)
  Sender: FDA-Public Use
  Company Number: US-MEDIMMUNE-MEDI-0012172

PATIENT
  Sex: Male

DRUGS (2)
  1. SYNAGIS [Suspect]
     Dates: start: 20101223, end: 20101223
  2. SYNAGIS [Suspect]
     Dates: start: 20101115, end: 20101115

REACTIONS (1)
  - CROUP INFECTIOUS [None]
